FAERS Safety Report 9785678 (Version 1)
Quarter: 2013Q4

REPORT INFORMATION
  Report Type: Spontaneous
  Country: US (occurrence: None)
  Receive Date: 20131226
  Receipt Date: 20131226
  Transmission Date: 20140711
  Serious: Yes (Other)
  Sender: FDA-Public Use
  Company Number: None

PATIENT
  Age: 61 Year
  Sex: Female
  Weight: 70.31 kg

DRUGS (10)
  1. REBIF REBIDOSE [Suspect]
     Indication: MULTIPLE SCLEROSIS
     Dosage: 44 MCG/0.5ML  1 INJECTION  3 TIMES A WK  SUBCUTANEOUS INJECTION
     Route: 058
     Dates: start: 20020301, end: 20131214
  2. AMBIEN [Concomitant]
  3. BUSPIRONE [Concomitant]
  4. ZANTAFLEX [Concomitant]
  5. TYLENOL [Concomitant]
  6. BACLOFEN [Concomitant]
  7. CLONAZEPAM [Concomitant]
  8. VITAMIN D [Concomitant]
  9. OMEGA 3 FISH OIL [Concomitant]
  10. CALCIUM [Concomitant]

REACTIONS (5)
  - Contusion [None]
  - Rash [None]
  - Asthenia [None]
  - Headache [None]
  - Injection site mass [None]
